APPROVED DRUG PRODUCT: CHLOROTHIAZIDE SODIUM
Active Ingredient: CHLOROTHIAZIDE SODIUM
Strength: EQ 500MG BASE/VIAL
Dosage Form/Route: INJECTABLE;INJECTION
Application: A091546 | Product #001 | TE Code: AP
Applicant: SUN PHARMACEUTICAL INDUSTRIES LTD
Approved: Jul 26, 2011 | RLD: No | RS: No | Type: RX